FAERS Safety Report 25627966 (Version 1)
Quarter: 2025Q3

REPORT INFORMATION
  Report Type: Spontaneous
  Country: US (occurrence: US)
  Receive Date: 20250731
  Receipt Date: 20250731
  Transmission Date: 20251020
  Serious: No
  Sender: Kenvue
  Company Number: US-KENVUE-20250701697

PATIENT
  Age: 65 Year
  Sex: Female

DRUGS (13)
  1. BENADRYL [Suspect]
     Active Substance: DIPHENHYDRAMINE HYDROCHLORIDE
     Indication: Rash
     Route: 065
     Dates: start: 202506
  2. BENADRYL [Suspect]
     Active Substance: DIPHENHYDRAMINE HYDROCHLORIDE
     Indication: Blister
  3. PEPCID [Suspect]
     Active Substance: FAMOTIDINE
     Indication: Rash
     Route: 065
     Dates: start: 202506
  4. PEPCID [Suspect]
     Active Substance: FAMOTIDINE
     Indication: Blister
  5. NEUTROGENA AGE SHIELD FACE OIL FREE SUNSCREEN LOTION BROAD SPECTRUM SP [Concomitant]
     Indication: Prophylaxis against solar radiation
     Route: 061
     Dates: start: 20250620, end: 202506
  6. CORTISONE ACETATE [Concomitant]
     Active Substance: CORTISONE ACETATE
     Indication: Rash
     Route: 065
     Dates: start: 202506
  7. CORTISONE ACETATE [Concomitant]
     Active Substance: CORTISONE ACETATE
     Indication: Blister
  8. CLARITIN [Concomitant]
     Active Substance: LORATADINE
     Indication: Acne
     Route: 065
     Dates: start: 202506
  9. CLARITIN [Concomitant]
     Active Substance: LORATADINE
     Indication: Blister
  10. METHYLPREDNISOLONE [Concomitant]
     Active Substance: METHYLPREDNISOLONE
     Indication: Acne
     Route: 065
     Dates: start: 202506
  11. METHYLPREDNISOLONE [Concomitant]
     Active Substance: METHYLPREDNISOLONE
     Indication: Blister
  12. BETAMETHASONE\CLOTRIMAZOLE [Concomitant]
     Active Substance: BETAMETHASONE\CLOTRIMAZOLE
     Indication: Acne
     Route: 061
     Dates: start: 202506
  13. BETAMETHASONE\CLOTRIMAZOLE [Concomitant]
     Active Substance: BETAMETHASONE\CLOTRIMAZOLE
     Indication: Blister

REACTIONS (2)
  - Off label use [Unknown]
  - Therapeutic response unexpected [Unknown]

NARRATIVE: CASE EVENT DATE: 20250601
